FAERS Safety Report 4733050-6 (Version None)
Quarter: 2005Q3

REPORT INFORMATION
  Report Type: 
  Country: None (occurrence: None)
  Receive Date: 20050725
  Receipt Date: 20040720
  Transmission Date: 20060218
  Serious: Yes (Death, Other)
  Sender: FDA-Public Use
  Company Number: USA-2004-0016113

PATIENT
  Age: 36 Year
  Sex: Male

DRUGS (2)
  1. MORPHINE SULFATE [Suspect]
  2. ETHANOL (ETHANOL) [Suspect]

REACTIONS (2)
  - ACCIDENTAL OVERDOSE [None]
  - DRUG ABUSER [None]
